FAERS Safety Report 23913572 (Version 2)
Quarter: 2024Q2

REPORT INFORMATION
  Report Type: Report from Study
  Country: AU (occurrence: AU)
  Receive Date: 20240529
  Receipt Date: 20240619
  Transmission Date: 20240716
  Serious: Yes (Other)
  Sender: FDA-Public Use
  Company Number: AU-002147023-NVSC2024AU112482

PATIENT
  Sex: Female

DRUGS (2)
  1. KESIMPTA [Suspect]
     Active Substance: OFATUMUMAB
     Indication: Relapsing-remitting multiple sclerosis
     Dosage: 20 MG, QW
     Route: 058
     Dates: start: 20240527
  2. KESIMPTA [Suspect]
     Active Substance: OFATUMUMAB
     Dosage: 20 UNK, Q2W
     Route: 058

REACTIONS (7)
  - Neutropenia [Unknown]
  - Tremor [Unknown]
  - Pain [Unknown]
  - Dry mouth [Unknown]
  - Flushing [Unknown]
  - Malaise [Unknown]
  - Blepharospasm [Unknown]

NARRATIVE: CASE EVENT DATE: 20240101
